FAERS Safety Report 18819759 (Version 1)
Quarter: 2021Q1

REPORT INFORMATION
  Report Type: Report from Study
  Country: US (occurrence: US)
  Receive Date: 20210202
  Receipt Date: 20210202
  Transmission Date: 20210419
  Serious: Yes (Death, Other)
  Sender: FDA-Public Use
  Company Number: US-ACADIA PHARMACEUTICALS INC.-ACA-2021-PIM-000067

PATIENT
  Age: 80 Year
  Sex: Male

DRUGS (9)
  1. LORAZEPAM. [Concomitant]
     Active Substance: LORAZEPAM
  2. CARBIDOPA/LEVODOPA [Concomitant]
     Active Substance: CARBIDOPA\LEVODOPA
  3. ENTACAPONE. [Concomitant]
     Active Substance: ENTACAPONE
  4. AMITIZA [Concomitant]
     Active Substance: LUBIPROSTONE
  5. CLONAZEPAM. [Concomitant]
     Active Substance: CLONAZEPAM
  6. NUPLAZID [Suspect]
     Active Substance: PIMAVANSERIN TARTRATE
     Indication: PARKINSON^S DISEASE
     Dosage: 34 MILLIGRAM, QD
     Route: 048
     Dates: start: 20200630, end: 2020
  7. DONEPEZIL. [Concomitant]
     Active Substance: DONEPEZIL
  8. FLUDROCORTISONE [Concomitant]
     Active Substance: FLUDROCORTISONE
  9. MEMANTINE. [Concomitant]
     Active Substance: MEMANTINE

REACTIONS (1)
  - Death [Recovered/Resolved]

NARRATIVE: CASE EVENT DATE: 20201229
